FAERS Safety Report 15528143 (Version 1)
Quarter: 2018Q4

REPORT INFORMATION
  Report Type: Spontaneous
  Country: US (occurrence: US)
  Receive Date: 20181020
  Receipt Date: 20181020
  Transmission Date: 20190205
  Serious: No
  Sender: FDA-Public Use
  Company Number: US-JNJFOC-20171206449

PATIENT
  Age: 64 Year
  Sex: Female
  Weight: 58.06 kg

DRUGS (3)
  1. CHILDRENS SUDAFED NASAL DECONGESTANT [Suspect]
     Active Substance: PSEUDOEPHEDRINE HYDROCHLORIDE
     Indication: EAR CONGESTION
     Route: 048
     Dates: start: 20171202, end: 20171203
  2. CHILDRENS SUDAFED NASAL DECONGESTANT [Suspect]
     Active Substance: PSEUDOEPHEDRINE HYDROCHLORIDE
     Indication: NASAL CONGESTION
     Route: 048
     Dates: start: 20171202, end: 20171203
  3. CHILDRENS SUDAFED NASAL DECONGESTANT [Suspect]
     Active Substance: PSEUDOEPHEDRINE HYDROCHLORIDE
     Indication: PARANASAL SINUS DISCOMFORT
     Route: 048
     Dates: start: 20171202, end: 20171203

REACTIONS (5)
  - Product administered to patient of inappropriate age [Unknown]
  - Therapeutic response unexpected [Unknown]
  - Inappropriate schedule of product administration [Unknown]
  - Product use in unapproved indication [Unknown]
  - Off label use [Unknown]

NARRATIVE: CASE EVENT DATE: 20171202
